FAERS Safety Report 13947952 (Version 1)
Quarter: 2017Q3

REPORT INFORMATION
  Report Type: Spontaneous
  Country: US (occurrence: US)
  Receive Date: 20170908
  Receipt Date: 20170908
  Transmission Date: 20171128
  Serious: No
  Sender: FDA-Public Use
  Company Number: US-PFIZER INC-2017340704

PATIENT
  Age: 71 Year
  Sex: Female

DRUGS (2)
  1. XELJANZ XR [Suspect]
     Active Substance: TOFACITINIB CITRATE
     Indication: RHEUMATOID ARTHRITIS
  2. XELJANZ XR [Suspect]
     Active Substance: TOFACITINIB CITRATE
     Indication: BONE CYST
     Dosage: 11 MG, UNK
     Route: 048

REACTIONS (12)
  - Memory impairment [Unknown]
  - Insomnia [Unknown]
  - Sleep disorder [Unknown]
  - Anxiety [Unknown]
  - Malaise [Unknown]
  - Depression [Unknown]
  - Drug ineffective [Unknown]
  - Fatigue [Unknown]
  - Erythema [Unknown]
  - Joint swelling [Unknown]
  - Arthralgia [Unknown]
  - Peripheral swelling [Unknown]
